FAERS Safety Report 12894304 (Version 2)
Quarter: 2016Q4

REPORT INFORMATION
  Report Type: Report from Study
  Country: None (occurrence: BR)
  Receive Date: 20161028
  Receipt Date: 20161114
  Transmission Date: 20170207
  Serious: Yes (Death, Hospitalization, Disabling)
  Sender: FDA-Public Use
  Company Number: BR-ABBVIE-16K-020-1765473-00

PATIENT
  Age: 78 Year
  Sex: Female
  Weight: 105 kg

DRUGS (4)
  1. SELOPRESS [Concomitant]
     Active Substance: HYDROCHLOROTHIAZIDE\METOPROLOL TARTRATE
     Indication: BLOOD PRESSURE MANAGEMENT
     Route: 048
  2. HUMIRA [Suspect]
     Active Substance: ADALIMUMAB
     Indication: RHEUMATOID ARTHRITIS
     Route: 058
     Dates: start: 20110101
  3. OMEPRAZOLE. [Concomitant]
     Active Substance: OMEPRAZOLE
     Indication: GASTRIC DISORDER
     Route: 048
  4. METHOTREXATE. [Concomitant]
     Active Substance: METHOTREXATE
     Indication: ARTHRITIS
     Route: 048

REACTIONS (2)
  - Asthenia [Unknown]
  - Pneumonia [Fatal]

NARRATIVE: CASE EVENT DATE: 20160906
